FAERS Safety Report 8553099-5 (Version None)
Quarter: 2012Q3

REPORT INFORMATION
  Report Type: 
  Country: None (occurrence: None)
  Receive Date: 20120731
  Receipt Date: 20120720
  Transmission Date: 20120928
  Serious: Yes (Other)
  Sender: FDA-Public Use
  Company Number: US-NOVOPROD-356617

PATIENT
  Age: 66 Year
  Sex: Female
  Weight: 81.633 kg

DRUGS (8)
  1. VAGIFEM [Suspect]
     Indication: VULVOVAGINAL DRYNESS
     Dosage: 10 A?G, QD
     Route: 067
     Dates: start: 20100101
  2. HUMULIN                            /00646003/ [Concomitant]
     Indication: DIABETES MELLITUS
     Route: 058
  3. VAGIFEM [Suspect]
     Indication: VULVOVAGINAL PAIN
     Dosage: 10 A?G, TID
     Route: 067
  4. VAGIFEM [Suspect]
     Dosage: 10 A?G, BID
     Route: 067
  5. INSULIN ISOPHANE [Concomitant]
     Indication: DIABETES MELLITUS
     Route: 058
  6. VAGIFEM [Suspect]
     Dosage: 10 A?G, PRN
     Route: 067
     Dates: end: 20120625
  7. LIPITOR [Concomitant]
     Indication: BLOOD CHOLESTEROL ABNORMAL
     Dosage: 20 MG, QD
     Route: 048
  8. LIPITOR [Concomitant]
     Dosage: 20 MG, QOD
     Route: 048

REACTIONS (3)
  - ROAD TRAFFIC ACCIDENT [None]
  - FEMUR FRACTURE [None]
  - DRUG INEFFECTIVE [None]
